FAERS Safety Report 15120843 (Version 4)
Quarter: 2018Q4

REPORT INFORMATION
  Report Type: Spontaneous
  Country: US (occurrence: US)
  Receive Date: 20180709
  Receipt Date: 20181203
  Transmission Date: 20190204
  Serious: No
  Sender: FDA-Public Use
  Company Number: US-SA-2018SA173737

PATIENT
  Age: 29 Year
  Sex: Male

DRUGS (2)
  1. DUPIXENT [Suspect]
     Active Substance: DUPILUMAB
     Indication: ECZEMA
     Dosage: 600 MG, 1X
     Route: 058
     Dates: start: 20180417
  2. DUPIXENT [Suspect]
     Active Substance: DUPILUMAB
     Indication: DERMATITIS ATOPIC
     Dosage: 300 UNK
     Route: 058
     Dates: start: 2018

REACTIONS (7)
  - Hot flush [Unknown]
  - Hypoaesthesia [Unknown]
  - Muscle tightness [Unknown]
  - Erythema [Unknown]
  - Muscle fatigue [Unknown]
  - Unevaluable event [Unknown]
  - Paraesthesia [Unknown]

NARRATIVE: CASE EVENT DATE: 201805
